FAERS Safety Report 13285286 (Version 1)
Quarter: 2017Q1

REPORT INFORMATION
  Report Type: Spontaneous
  Country: US (occurrence: US)
  Receive Date: 20170301
  Receipt Date: 20170301
  Transmission Date: 20170428
  Serious: Yes (Disabling)
  Sender: FDA-Public Use
  Company Number: None

PATIENT
  Age: 58 Year
  Sex: Female
  Weight: 128.2 kg

DRUGS (10)
  1. SPIRONOLACTONE. [Suspect]
     Active Substance: SPIRONOLACTONE
     Indication: HYPERTENSION
     Dosage: ?          QUANTITY:1 TABLET(S);?
     Route: 048
     Dates: start: 20161030, end: 20161130
  2. PRO AIR INHALER [Concomitant]
  3. B100 [Concomitant]
     Active Substance: MINERALS\VITAMINS
  4. VITAMIN C [Concomitant]
     Active Substance: ASCORBIC ACID
  5. CLONIDINE. [Concomitant]
     Active Substance: CLONIDINE
  6. MOMETASONE FOROATE CREAM [Concomitant]
  7. MULTIPLE VITAMIN [Concomitant]
     Active Substance: VITAMINS
  8. COCONUT OIL [Concomitant]
     Active Substance: COCONUT OIL
  9. AMITRIPTILINE [Concomitant]
  10. NASAL SPRAY [Concomitant]
     Active Substance: UNSPECIFIED INGREDIENT

REACTIONS (5)
  - Oedema peripheral [None]
  - Product substitution issue [None]
  - Joint swelling [None]
  - Gait disturbance [None]
  - Drug ineffective [None]

NARRATIVE: CASE EVENT DATE: 20161130
